FAERS Safety Report 25791071 (Version 1)
Quarter: 2025Q3

REPORT INFORMATION
  Report Type: Spontaneous
  Country: US (occurrence: US)
  Receive Date: 20250911
  Receipt Date: 20250911
  Transmission Date: 20251020
  Serious: Yes (Other)
  Sender: GRIFOLS
  Company Number: US-IGSA-BIG0037850

PATIENT
  Age: 43 Year
  Sex: Male

DRUGS (2)
  1. HUMAN IMMUNOGLOBULIN G [Suspect]
     Active Substance: HUMAN IMMUNOGLOBULIN G
     Indication: Ocular pemphigoid
     Route: 042
  2. HUMAN IMMUNOGLOBULIN G [Suspect]
     Active Substance: HUMAN IMMUNOGLOBULIN G
     Indication: Off label use

REACTIONS (8)
  - Infusion site erythema [Unknown]
  - Infusion site swelling [Unknown]
  - Infusion site pain [Unknown]
  - Superficial vein thrombosis [Unknown]
  - Asthenia [Unknown]
  - Blindness unilateral [Unknown]
  - Retinal vein occlusion [Unknown]
  - Macular oedema [Unknown]
